FAERS Safety Report 14726872 (Version 1)
Quarter: 2018Q2

REPORT INFORMATION
  Report Type: Spontaneous
  Country: US (occurrence: US)
  Receive Date: 20180406
  Receipt Date: 20180406
  Transmission Date: 20180711
  Serious: No
  Sender: FDA-Public Use
  Company Number: US-BAYER-2018-065313

PATIENT
  Age: 27 Year
  Sex: Female

DRUGS (1)
  1. GADAVIST [Suspect]
     Active Substance: GADOBUTROL
     Dosage: 5 ML, ONCE
     Dates: start: 20180403, end: 20180403

REACTIONS (1)
  - Sneezing [None]

NARRATIVE: CASE EVENT DATE: 20180403
